FAERS Safety Report 11765526 (Version 1)
Quarter: 2015Q4

REPORT INFORMATION
  Report Type: Spontaneous
  Country: US (occurrence: US)
  Receive Date: 20151120
  Receipt Date: 20151120
  Transmission Date: 20160304
  Serious: No
  Sender: FDA-Public Use
  Company Number: US-ELI_LILLY_AND_COMPANY-US201403005189

PATIENT
  Age: 53 Year
  Sex: Female

DRUGS (1)
  1. FORTEO [Suspect]
     Active Substance: TERIPARATIDE
     Indication: OSTEOPOROSIS
     Dosage: 20 UG, QD
     Route: 058
     Dates: start: 20140117

REACTIONS (14)
  - Vitamin D deficiency [Unknown]
  - Skin bacterial infection [Recovered/Resolved]
  - Fibrocystic breast disease [Unknown]
  - Injection site erythema [Unknown]
  - Vulvovaginal pruritus [Unknown]
  - Fluid retention [Unknown]
  - Fatigue [Unknown]
  - Pruritus [Unknown]
  - Rhinitis allergic [Unknown]
  - Impaired fasting glucose [Unknown]
  - Stress urinary incontinence [Unknown]
  - Swelling [Unknown]
  - Depression [Unknown]
  - Injection site pain [Unknown]

NARRATIVE: CASE EVENT DATE: 20140117
